FAERS Safety Report 25874284 (Version 2)
Quarter: 2025Q4

REPORT INFORMATION
  Report Type: Spontaneous
  Country: JP (occurrence: JP)
  Receive Date: 20251002
  Receipt Date: 20251023
  Transmission Date: 20260117
  Serious: Yes (Other)
  Sender: Alora Pharma
  Company Number: JP-ACELLA PHARMACEUTICALS, LLC-2025ALO02518

PATIENT
  Age: 6 Year
  Sex: Male

DRUGS (1)
  1. LACOSAMIDE [Suspect]
     Active Substance: LACOSAMIDE
     Indication: Benign rolandic epilepsy
     Dosage: 80 MG, 1X/DAY
     Route: 065

REACTIONS (2)
  - Myoclonus [Recovered/Resolved]
  - Electroencephalogram abnormal [Recovered/Resolved]
